FAERS Safety Report 26087073 (Version 1)
Quarter: 2025Q4

REPORT INFORMATION
  Report Type: Report from Study
  Country: CN (occurrence: CN)
  Receive Date: 20251125
  Receipt Date: 20251125
  Transmission Date: 20260117
  Serious: Yes (Death, Other)
  Sender: ROCHE
  Company Number: CN-ROCHE-10000435495

PATIENT

DRUGS (3)
  1. MYCOPHENOLATE MOFETIL [Suspect]
     Active Substance: MYCOPHENOLATE MOFETIL
     Indication: Immunosuppressant drug therapy
     Route: 048
  2. CYCLOSPORINE [Suspect]
     Active Substance: CYCLOSPORINE
     Indication: Immunosuppressant drug therapy
     Route: 065
  3. TACROLIMUS [Suspect]
     Active Substance: TACROLIMUS
     Indication: Immunosuppressant drug therapy
     Route: 065

REACTIONS (17)
  - Klebsiella infection [Unknown]
  - Pseudomonas infection [Unknown]
  - Acinetobacter infection [Unknown]
  - Stenotrophomonas infection [Unknown]
  - Enterobacter infection [Unknown]
  - Enterococcal infection [Unknown]
  - Staphylococcal infection [Unknown]
  - Mycobacterial infection [Unknown]
  - Abscess [Unknown]
  - Candida infection [Unknown]
  - Aspergillus infection [Unknown]
  - Cytomegalovirus infection [Unknown]
  - COVID-19 [Unknown]
  - Septic shock [Fatal]
  - Infection [Fatal]
  - Bile duct stenosis [Fatal]
  - Biliary fistula [Fatal]
